FAERS Safety Report 7811117-3 (Version None)
Quarter: 2011Q4

REPORT INFORMATION
  Report Type: 
  Country: None (occurrence: None)
  Receive Date: 20111012
  Receipt Date: 20111012
  Transmission Date: 20120403
  Serious: Yes (Death)
  Sender: FDA-Public Use
  Company Number: None

PATIENT
  Sex: Male
  Weight: 110.45 kg

DRUGS (3)
  1. FLUOROURACIL [Suspect]
     Dosage: 6384 MG
     Dates: end: 20110927
  2. ELOXATIN [Suspect]
     Dosage: 194 MG
     Dates: end: 20110927
  3. LEUCOVORIN CALCIUM [Suspect]
     Dosage: 912 MG
     Dates: end: 20110927

REACTIONS (3)
  - FALL [None]
  - CARDIAC DEATH [None]
  - MALAISE [None]
